FAERS Safety Report 5841614-1 (Version None)
Quarter: 2008Q3

REPORT INFORMATION
  Report Type: 
  Country: None (occurrence: None)
  Receive Date: 20080812
  Receipt Date: 20080802
  Transmission Date: 20090109
  Serious: Yes (Hospitalization)
  Sender: FDA-Public Use
  Company Number: PHHO2008US09524

PATIENT
  Age: 9 Year
  Sex: Male
  Weight: 34.6 kg

DRUGS (15)
  1. CGP 57148B T35717+ [Suspect]
     Indication: ACUTE LYMPHOCYTIC LEUKAEMIA
     Dosage: UNK
     Route: 048
     Dates: start: 20060220
  2. METHOTREXATE [Suspect]
  3. VINCRISTINE SULFATE [Suspect]
  4. MERCAPTOPURINE [Suspect]
  5. DEXAMETHASONE TAB [Suspect]
  6. ETOPOSIDE [Concomitant]
  7. IFOSFAMIDE [Concomitant]
  8. MESNA [Concomitant]
  9. NEUPOGEN [Concomitant]
  10. LEUCOVORIN CALCIUM [Concomitant]
  11. ARA-C [Concomitant]
  12. DAUNORUBICIN HCL [Concomitant]
  13. CYCLOPHOSPHAMIDE [Concomitant]
  14. PEGASPARGASE [Concomitant]
  15. ELSPAR [Concomitant]

REACTIONS (7)
  - DROOLING [None]
  - DYSARTHRIA [None]
  - HYPOTENSION [None]
  - LACRIMATION INCREASED [None]
  - MYDRIASIS [None]
  - SOMNOLENCE [None]
  - TRANSIENT ISCHAEMIC ATTACK [None]
